FAERS Safety Report 7248310-7 (Version None)
Quarter: 2011Q1

REPORT INFORMATION
  Report Type: 
  Country: None (occurrence: None)
  Receive Date: 20110127
  Receipt Date: 20110124
  Transmission Date: 20110831
  Serious: Yes (Other)
  Sender: FDA-Public Use
  Company Number: US-PFIZER INC-2011016936

PATIENT
  Sex: Female
  Weight: 53.515 kg

DRUGS (2)
  1. FLAGYL [Suspect]
     Indication: SINUSITIS
     Dosage: 500 MG, 3X/DAY
     Route: 048
     Dates: start: 20110116
  2. FLAGYL [Suspect]
     Dosage: 250 MG, 4X/DAY
     Route: 048

REACTIONS (2)
  - CONFUSIONAL STATE [None]
  - CEREBRAL DISORDER [None]
